FAERS Safety Report 18191072 (Version 1)
Quarter: 2020Q3

REPORT INFORMATION
  Report Type: Spontaneous
  Country: US (occurrence: US)
  Receive Date: 20200824
  Receipt Date: 20200824
  Transmission Date: 20201103
  Serious: Yes (Other)
  Sender: FDA-Public Use
  Company Number: None

PATIENT
  Sex: Female
  Weight: 63.05 kg

DRUGS (2)
  1. NORETHINDRONE ACETATE AND ETHINYL ESTRADIOL [Suspect]
     Active Substance: ETHINYL ESTRADIOL\NORETHINDRONE ACETATE
     Indication: POLYCYSTIC OVARIES
     Dosage: ?          OTHER DOSE:1MG/20MCG;?
     Route: 048
     Dates: start: 201705, end: 202005
  2. MIBELAS 24 FE [Suspect]
     Active Substance: ETHINYL ESTRADIOL\NORETHINDRONE ACETATE
     Indication: POLYCYSTIC OVARIES
     Dosage: ?          OTHER DOSE:1MG/20MCG;?
     Route: 048
     Dates: start: 202005, end: 202007

REACTIONS (4)
  - Alopecia [None]
  - Emotional disorder [None]
  - Amenorrhoea [None]
  - Malignant melanoma [None]
